FAERS Safety Report 4726595-6 (Version None)
Quarter: 2005Q3

REPORT INFORMATION
  Report Type: 
  Country: None (occurrence: None)
  Receive Date: 20050727
  Receipt Date: 20050518
  Transmission Date: 20060218
  Serious: Yes (Death, Hospitalization)
  Sender: FDA-Public Use
  Company Number: AU-MERCK-0505AUS00212

PATIENT
  Age: 78 Year
  Sex: Male

DRUGS (11)
  1. VIOXX [Suspect]
     Indication: ARTHRALGIA
     Route: 048
     Dates: start: 20030714, end: 20030805
  2. VIOXX [Suspect]
     Indication: OSTEOARTHRITIS
     Route: 048
     Dates: start: 20030714, end: 20030805
  3. ISOSORBIDE MONONITRATE [Concomitant]
     Route: 048
  4. ASPIRIN [Concomitant]
     Route: 048
  5. OLANZAPINE [Concomitant]
     Route: 048
     Dates: start: 20030101
  6. PNEUMOCOCCAL 23V POLYSACCHARIDE VACCINE [Concomitant]
     Route: 065
  7. CARBIDOPA AND LEVODOPA [Concomitant]
     Indication: DEMENTIA
     Route: 048
     Dates: start: 20030401, end: 20050401
  8. CARBIDOPA AND LEVODOPA [Concomitant]
     Route: 048
     Dates: start: 20030408
  9. CARBIDOPA AND LEVODOPA [Concomitant]
     Indication: PARKINSONISM
     Route: 048
     Dates: start: 20030401, end: 20050401
  10. CARBIDOPA AND LEVODOPA [Concomitant]
     Route: 048
     Dates: start: 20030408
  11. INFLUENZA VIRUS SPLIT VIRION 3V VACCINE INACTIVATED [Concomitant]
     Route: 065

REACTIONS (8)
  - CARDIAC FAILURE [None]
  - GENERAL PHYSICAL HEALTH DETERIORATION [None]
  - HALLUCINATION [None]
  - JOINT SWELLING [None]
  - OEDEMA PERIPHERAL [None]
  - PULMONARY OEDEMA [None]
  - RENAL FAILURE [None]
  - WHITE BLOOD CELL COUNT INCREASED [None]
